FAERS Safety Report 5237207-X (Version None)
Quarter: 2007Q1

REPORT INFORMATION
  Report Type: 
  Country: None (occurrence: None)
  Receive Date: 20070213
  Receipt Date: 20070205
  Transmission Date: 20070707
  Serious: Yes (Hospitalization, Other)
  Sender: FDA-Public Use
  Company Number: HQWYE940231OCT06

PATIENT
  Sex: Male

DRUGS (10)
  1. MYLOTARG [Suspect]
     Indication: ACUTE MYELOID LEUKAEMIA RECURRENT
     Route: 041
     Dates: start: 20051207, end: 20051207
  2. MYLOTARG [Suspect]
     Route: 041
     Dates: start: 20060529, end: 20060529
  3. NEUPOGEN [Suspect]
     Indication: ACUTE MYELOID LEUKAEMIA RECURRENT
     Dosage: DOSE, STRENGTH AND FREQUENCY NOT PROVIDED
     Route: 042
     Dates: start: 20051206, end: 20051226
  4. URSO [Concomitant]
     Indication: PROPHYLAXIS
     Route: 048
     Dates: start: 20051206, end: 20060123
  5. KYTRIL [Concomitant]
     Indication: PROPHYLAXIS
     Route: 041
     Dates: start: 20051207, end: 20051211
  6. SOLU-MEDROL [Concomitant]
     Route: 041
     Dates: start: 20051207, end: 20051207
  7. NORVASC [Concomitant]
     Route: 048
     Dates: start: 20051129
  8. CYTARABINE [Suspect]
     Indication: ACUTE MYELOID LEUKAEMIA RECURRENT
     Dosage: DOSE, STRENGTH AND FREQUENCY NOT PROVIDED
     Route: 042
     Dates: start: 20051207, end: 20051211
  9. CYTARABINE [Suspect]
     Dosage: DOSE NOT PROVIDED
     Route: 042
     Dates: start: 20060529, end: 20060602
  10. FRAGMIN [Concomitant]
     Dosage: 3000 IU/DAY
     Route: 041
     Dates: start: 20051206, end: 20051231

REACTIONS (9)
  - ASPARTATE AMINOTRANSFERASE INCREASED [None]
  - BLOOD LACTATE DEHYDROGENASE INCREASED [None]
  - C-REACTIVE PROTEIN INCREASED [None]
  - DISSEMINATED INTRAVASCULAR COAGULATION [None]
  - FEBRILE NEUTROPENIA [None]
  - LEUKOPENIA [None]
  - NEUTROPENIA [None]
  - PYREXIA [None]
  - THROMBOCYTOPENIA [None]
